FAERS Safety Report 6764204-5 (Version None)
Quarter: 2010Q2

REPORT INFORMATION
  Report Type: 
  Country: None (occurrence: None)
  Receive Date: 20100610
  Receipt Date: 20100602
  Transmission Date: 20101027
  Serious: Yes (Death)
  Sender: FDA-Public Use
  Company Number: B0649437A

PATIENT
  Sex: Male

DRUGS (5)
  1. PAXIL [Suspect]
     Indication: DEPRESSION
     Dosage: 10MG PER DAY
     Route: 048
     Dates: start: 20091218, end: 20091227
  2. OLMETEC [Concomitant]
     Indication: HYPERTENSION
     Dosage: 5MG PER DAY
     Route: 048
     Dates: start: 20090709, end: 20091228
  3. FAMOTIDINE [Concomitant]
     Indication: GASTRITIS
     Dosage: 20MG PER DAY
     Route: 048
     Dates: start: 20090709, end: 20091228
  4. MAGMITT [Concomitant]
     Indication: CONSTIPATION
     Dosage: 990MG PER DAY
     Route: 048
     Dates: start: 20090709, end: 20091228
  5. MYSLEE [Concomitant]
     Indication: INSOMNIA
     Dosage: 5MG PER DAY
     Route: 048
     Dates: start: 20091218, end: 20091227

REACTIONS (1)
  - COMPLETED SUICIDE [None]
